FAERS Safety Report 23721142 (Version 1)
Quarter: 2024Q2

REPORT INFORMATION
  Report Type: Spontaneous
  Country: NO (occurrence: NO)
  Receive Date: 20240409
  Receipt Date: 20240409
  Transmission Date: 20240716
  Serious: Yes (Other)
  Sender: FDA-Public Use
  Company Number: NO-TEVA-VS-3142468

PATIENT
  Sex: Female

DRUGS (6)
  1. OLANZAPINE [Suspect]
     Active Substance: OLANZAPINE
     Indication: Mania
     Route: 065
     Dates: start: 20010101
  2. OLANZAPINE [Suspect]
     Active Substance: OLANZAPINE
     Indication: Mania
     Route: 065
  3. BENSERAZIDE HYDROCHLORIDE\LEVODOPA [Concomitant]
     Active Substance: BENSERAZIDE HYDROCHLORIDE\LEVODOPA
     Indication: Parkinsonism
     Dosage: MADOPAR PROLONGED RELEASE 25/100 X 1- 5 TIMESS PER DAY
  4. METOPROLOL TARTRATE [Concomitant]
     Active Substance: METOPROLOL TARTRATE
     Indication: Migraine with aura
     Route: 065
  5. ZYPREXA [Suspect]
     Active Substance: OLANZAPINE
     Indication: Mania
     Route: 065
     Dates: start: 20010101
  6. ZYPREXA [Suspect]
     Active Substance: OLANZAPINE
     Indication: Mania
     Route: 065

REACTIONS (9)
  - Parkinsonism [Unknown]
  - Aphasia [Unknown]
  - Dyskinesia [Unknown]
  - Loss of personal independence in daily activities [Unknown]
  - Psychogenic movement disorder [Unknown]
  - Neurodegenerative disorder [Unknown]
  - Walking aid user [Unknown]
  - Fatigue [Recovered/Resolved]
  - Photophobia [Unknown]
